FAERS Safety Report 25865529 (Version 4)
Quarter: 2025Q4

REPORT INFORMATION
  Report Type: Spontaneous
  Country: US (occurrence: US)
  Receive Date: 20250930
  Receipt Date: 20251022
  Transmission Date: 20260119
  Serious: No
  Sender: SANOFI AVENTIS
  Company Number: US-SANOFI-02668055

PATIENT
  Age: 65 Year
  Sex: Male

DRUGS (1)
  1. LANTUS SOLOSTAR [Suspect]
     Active Substance: INSULIN GLARGINE
     Indication: Diabetes mellitus
     Dosage: 25 IU, QD
     Route: 065

REACTIONS (3)
  - Blood glucose abnormal [Unknown]
  - Incorrect dose administered by device [Unknown]
  - Device defective [Unknown]
